FAERS Safety Report 11879910 (Version 1)
Quarter: 2015Q4

REPORT INFORMATION
  Report Type: Spontaneous
  Country: IT (occurrence: IT)
  Receive Date: 20151230
  Receipt Date: 20151230
  Transmission Date: 20160305
  Serious: Yes (Other)
  Sender: FDA-Public Use
  Company Number: IT-GILEAD-2015-0189781

PATIENT
  Age: 46 Year
  Sex: Female

DRUGS (1)
  1. EVIPLERA [Suspect]
     Active Substance: EMTRICITABINE\RILPIVIRINE\TENOFOVIR DISOPROXIL FUMARATE
     Indication: HIV INFECTION
     Dosage: 1 DF, QD
     Route: 048
     Dates: start: 20141201, end: 20141211

REACTIONS (3)
  - Pyrexia [Unknown]
  - Arthralgia [Unknown]
  - Constipation [Unknown]

NARRATIVE: CASE EVENT DATE: 20141211
